FAERS Safety Report 7777073-1 (Version None)
Quarter: 2011Q3

REPORT INFORMATION
  Report Type: 
  Country: None (occurrence: None)
  Receive Date: 20110926
  Receipt Date: 20110926
  Transmission Date: 20111222
  Serious: Yes (Life-Threatening, Hospitalization, Other)
  Sender: FDA-Public Use
  Company Number: None

PATIENT
  Age: 36 Year
  Sex: Female
  Weight: 130.63 kg

DRUGS (2)
  1. SUBOXONE [Suspect]
     Indication: PAIN
     Dosage: 1MG-5MG
     Route: 048
     Dates: start: 20110603, end: 20110829
  2. SUBOXONE FILM STRIPS [Concomitant]
     Indication: CYSTITIS INTERSTITIAL
     Dosage: 1MG-4MG
     Route: 060
     Dates: start: 20110620, end: 20110722

REACTIONS (24)
  - INSOMNIA [None]
  - AGEUSIA [None]
  - DEHYDRATION [None]
  - ABDOMINAL PAIN [None]
  - TINNITUS [None]
  - DECREASED APPETITE [None]
  - MYALGIA [None]
  - VOMITING [None]
  - SWOLLEN TONGUE [None]
  - VISION BLURRED [None]
  - SUICIDAL IDEATION [None]
  - DRUG INEFFECTIVE [None]
  - DIZZINESS [None]
  - HYPERHIDROSIS [None]
  - TACHYCARDIA [None]
  - DIARRHOEA [None]
  - INCORRECT DOSE ADMINISTERED [None]
  - DRUG PRESCRIBING ERROR [None]
  - FATIGUE [None]
  - NAUSEA [None]
  - OEDEMA MOUTH [None]
  - PALPITATIONS [None]
  - URINARY RETENTION [None]
  - ADRENOCORTICAL INSUFFICIENCY ACUTE [None]
